FAERS Safety Report 6045625-5 (Version None)
Quarter: 2009Q1

REPORT INFORMATION
  Report Type: 
  Country: None (occurrence: None)
  Receive Date: 20090121
  Receipt Date: 20090105
  Transmission Date: 20090719
  Serious: Yes (Disabling, Other)
  Sender: FDA-Public Use
  Company Number: BE-MERCK-0712BEL00015

PATIENT
  Age: 48 Year
  Sex: Female
  Weight: 99 kg

DRUGS (9)
  1. ZETIA [Suspect]
     Indication: HYPERCHOLESTEROLAEMIA
     Route: 048
     Dates: start: 20070101, end: 20070101
  2. ZETIA [Suspect]
     Route: 048
     Dates: start: 20070901, end: 20071010
  3. FLUVASTATIN SODIUM [Concomitant]
     Indication: HYPERCHOLESTEROLAEMIA
     Route: 048
     Dates: end: 20081010
  4. TELMISARTAN [Concomitant]
     Indication: HYPERTENSION
     Route: 048
     Dates: end: 20081010
  5. ASPIRIN [Concomitant]
     Indication: CARDIOVASCULAR EVENT PROPHYLAXIS
     Route: 048
  6. INSULIN GLARGINE [Concomitant]
     Indication: TYPE 1 DIABETES MELLITUS
     Route: 058
  7. INSULIN ASPART [Concomitant]
     Indication: TYPE 1 DIABETES MELLITUS
     Route: 058
  8. INDAPAMIDE [Concomitant]
     Indication: HYPERTENSION
     Route: 048
  9. RAMIPRIL [Concomitant]
     Indication: HYPERTENSION
     Route: 048

REACTIONS (6)
  - ASTHENIA [None]
  - BLOOD ALKALINE PHOSPHATASE INCREASED [None]
  - DIABETES MELLITUS [None]
  - HEPATIC ENZYME INCREASED [None]
  - HEPATITIS TOXIC [None]
  - INFLAMMATION [None]
